FAERS Safety Report 5114338-6 (Version None)
Quarter: 2006Q3

REPORT INFORMATION
  Report Type: 
  Country: None (occurrence: None)
  Receive Date: 20060731
  Receipt Date: 20060503
  Transmission Date: 20061208
  Serious: No
  Sender: FDA-Public Use
  Company Number: 2006PV013243

PATIENT
  Age: 75 Year
  Sex: Female
  Weight: 68.4932 kg

DRUGS (2)
  1. BYETTA [Suspect]
     Indication: DIABETES MELLITUS INSULIN-DEPENDENT
     Dosage: 5 MCG;BID;SC
     Route: 058
     Dates: start: 20060403
  2. HUMALOG [Concomitant]

REACTIONS (5)
  - ABDOMINAL PAIN [None]
  - BLOOD GLUCOSE DECREASED [None]
  - DIARRHOEA [None]
  - FLATULENCE [None]
  - SLUGGISHNESS [None]
